FAERS Safety Report 4498099-X (Version None)
Quarter: 2004Q4

REPORT INFORMATION
  Report Type: 
  Country: None (occurrence: None)
  Receive Date: 20040927
  Receipt Date: 20040726
  Transmission Date: 20050328
  Serious: No
  Sender: FDA-Public Use
  Company Number: USA040773578

PATIENT
  Age: 1 Year
  Sex: Female
  Weight: 16 kg

DRUGS (1)
  1. STRATTERA [Suspect]
     Dosage: 50 MG
     Dates: start: 20040726, end: 20040726

REACTIONS (2)
  - ACCIDENTAL OVERDOSE [None]
  - MEDICATION ERROR [None]
